FAERS Safety Report 4505430-5 (Version None)
Quarter: 2004Q4

REPORT INFORMATION
  Report Type: 
  Country: None (occurrence: None)
  Receive Date: 20041118
  Receipt Date: 20041118
  Transmission Date: 20050328
  Serious: Yes (Hospitalization)
  Sender: FDA-Public Use
  Company Number: None

PATIENT
  Age: 52 Year
  Sex: Female
  Weight: 68.0396 kg

DRUGS (2)
  1. SYNTHROID [Suspect]
     Dosage: 1 TIME A DAY
  2. LEVOXYL [Suspect]

REACTIONS (4)
  - EYE SWELLING [None]
  - OEDEMA MOUTH [None]
  - OROPHARYNGEAL SWELLING [None]
  - SWELLING [None]
